FAERS Safety Report 4496659-3 (Version None)
Quarter: 2004Q4

REPORT INFORMATION
  Report Type: 
  Country: None (occurrence: None)
  Receive Date: 20041108
  Receipt Date: 20041108
  Transmission Date: 20050328
  Serious: Yes (Hospitalization)
  Sender: FDA-Public Use
  Company Number: None

PATIENT
  Age: 52 Year
  Sex: Male
  Weight: 81 kg

DRUGS (1)
  1. VANCOMYCIN [Suspect]
     Indication: ENDOCARDITIS BACTERIAL
     Dosage: 1000 MG Q12 HOURS IV
     Route: 042
     Dates: start: 20040330, end: 20040408

REACTIONS (2)
  - INFUSION RELATED REACTION [None]
  - RED MAN SYNDROME [None]
